FAERS Safety Report 5338280-0 (Version None)
Quarter: 2007Q2

REPORT INFORMATION
  Report Type: 
  Country: None (occurrence: None)
  Receive Date: 20070327
  Receipt Date: 20070221
  Transmission Date: 20071010
  Serious: Yes (Life-Threatening)
  Sender: FDA-Public Use
  Company Number: 237009

PATIENT
  Age: 57 Year

DRUGS (1)
  1. AVASTIN [Suspect]
     Indication: COLON CANCER
     Dosage: 1460 MG
     Dates: start: 20040426

REACTIONS (1)
  - NEPHROTIC SYNDROME [None]
